FAERS Safety Report 16262783 (Version 2)
Quarter: 2019Q2

REPORT INFORMATION
  Report Type: Spontaneous
  Country: NL (occurrence: NL)
  Receive Date: 20190502
  Receipt Date: 20190508
  Transmission Date: 20190711
  Serious: Yes (Other)
  Sender: FDA-Public Use
  Company Number: NL-ROCHE-2310093

PATIENT
  Sex: Female

DRUGS (2)
  1. PACLITAXEL. [Concomitant]
     Active Substance: PACLITAXEL
  2. HERCEPTIN [Suspect]
     Active Substance: TRASTUZUMAB
     Indication: BREAST CANCER
     Dosage: FIRST ADMINISTERED WEEKLY 2 MG/KG, THEN THREE WEEKLY 6 MG/KG.
     Route: 042
     Dates: start: 20090421, end: 20100812

REACTIONS (1)
  - Osteoarthritis [Recovered/Resolved]
